FAERS Safety Report 4964382-4 (Version None)
Quarter: 2006Q1

REPORT INFORMATION
  Report Type: 
  Country: None (occurrence: None)
  Receive Date: 20060331
  Receipt Date: 20060322
  Transmission Date: 20060701
  Serious: Yes (Death, Hospitalization, Other)
  Sender: FDA-Public Use
  Company Number: JP200603003157

PATIENT
  Age: 68 Year
  Sex: Male

DRUGS (17)
  1. GEMZAR [Suspect]
     Indication: NON-SMALL CELL LUNG CANCER
     Dosage: 1000 MG/M2, OTHER, INTRAVENOUS; 800 MG/M2, OTHER, INTRAVENOUS
     Route: 042
     Dates: start: 20050927, end: 20051004
  2. GEMZAR [Suspect]
     Indication: NON-SMALL CELL LUNG CANCER
     Dosage: 1000 MG/M2, OTHER, INTRAVENOUS; 800 MG/M2, OTHER, INTRAVENOUS
     Route: 042
     Dates: start: 20051025
  3. VINORELBINE TARTRATE [Concomitant]
  4. TOOTECIN (IRINOTECAN HYDROCHLORIDE) [Concomitant]
  5. UNIPHYL [Concomitant]
  6. AMLODIPINE BESYLATE [Concomitant]
  7. SILECE (FLUNITRAZEPAM) [Concomitant]
  8. SIGMART (NICORANDIL) [Concomitant]
  9. MAGNESIUM OXIDE (MAGNESIUM OXIDE) [Concomitant]
  10. LANSOPRAZOLE [Concomitant]
  11. SULFAMETHOXAZOLE + TRIMETHOPRIM [Concomitant]
  12. BUFFERIN (ACETYLSALICYLIC ACID, ALUMINIUM GLYCINATE) [Concomitant]
  13. PANTETHINE (PANTETHINE) [Concomitant]
  14. MOBIC [Concomitant]
  15. CODEINE PHOSPHATE (CODEINE PHOSPHATE) [Concomitant]
  16. NITROGLYCERIN [Concomitant]
  17. MOHRUS (KETOPROFEN) [Concomitant]

REACTIONS (4)
  - FEBRILE NEUTROPENIA [None]
  - MALIGNANT NEOPLASM PROGRESSION [None]
  - NEUTROPHIL COUNT DECREASED [None]
  - RECALL PHENOMENON [None]
